FAERS Safety Report 17636326 (Version 1)
Quarter: 2020Q2

REPORT INFORMATION
  Report Type: Report from Study
  Country: US (occurrence: US)
  Receive Date: 20200407
  Receipt Date: 20200407
  Transmission Date: 20200713
  Serious: Yes (Death)
  Sender: FDA-Public Use
  Company Number: US-TAIHO ONCOLOGY  INC-EU-2020-01119

PATIENT
  Age: 30 Year
  Sex: Male

DRUGS (2)
  1. LONSURF [Suspect]
     Active Substance: TIPIRACIL HYDROCHLORIDE\TRIFLURIDINE
     Indication: GASTRIC CANCER
     Dosage: CYCLE NUMBER UNKNOWN
     Route: 048
     Dates: start: 20191030
  2. LYNPARZA [Suspect]
     Active Substance: OLAPARIB
     Indication: PRODUCT USED FOR UNKNOWN INDICATION
     Dosage: BID FOR 5 DAYS, EVERY 14 DAYS

REACTIONS (1)
  - Death [Fatal]

NARRATIVE: CASE EVENT DATE: 20200320
